FAERS Safety Report 18804555 (Version 3)
Quarter: 2022Q1

REPORT INFORMATION
  Report Type: Spontaneous
  Country: US (occurrence: US)
  Receive Date: 20210129
  Receipt Date: 20220223
  Transmission Date: 20220424
  Serious: No
  Sender: FDA-Public Use
  Company Number: US-UCBSA-2020041019

PATIENT
  Age: 74 Year
  Sex: Male

DRUGS (15)
  1. VIMPAT [Suspect]
     Active Substance: LACOSAMIDE
     Indication: Status epilepticus
     Dosage: 200 MILLIGRAM, ONE TIME LOADING DOSE
  2. VIMPAT [Suspect]
     Active Substance: LACOSAMIDE
     Indication: Off label use
     Dosage: 100 MILLIGRAM, 2X/DAY (BID)
  3. LEVETIRACETAM [Suspect]
     Active Substance: LEVETIRACETAM
     Indication: Tonic convulsion
     Dosage: 1 GRAM, ONE TIME DOSE
  4. LEVETIRACETAM [Suspect]
     Active Substance: LEVETIRACETAM
     Indication: Status epilepticus
     Dosage: 1 GRAM, 2X/DAY (BID)
  5. LEVETIRACETAM [Suspect]
     Active Substance: LEVETIRACETAM
     Dosage: 500 MILLIGRAM, 2X/DAY (BID)
  6. LORAZEPAM [Suspect]
     Active Substance: LORAZEPAM
     Indication: Tonic convulsion
     Dosage: 4 MILLIGRAM
     Route: 042
  7. FOSPHENYTOIN [Suspect]
     Active Substance: FOSPHENYTOIN
     Indication: Tonic convulsion
     Dosage: UNK
  8. FOSPHENYTOIN [Suspect]
     Active Substance: FOSPHENYTOIN
     Dosage: 100 MILLIGRAM, 3X/DAY (TID)
  9. MIDAZOLAM [Suspect]
     Active Substance: MIDAZOLAM
     Indication: Tonic convulsion
     Dosage: 2 MILLIGRAM, HOURLY
  10. MIDAZOLAM [Suspect]
     Active Substance: MIDAZOLAM
     Dosage: 15 MILLIGRAM, HOURLY
  11. KETAMINE [Concomitant]
     Active Substance: KETAMINE
     Indication: Status epilepticus
     Dosage: 0.5 MILLIGRAM/KILOGRAM, ONE TIME DOSE
     Route: 042
  12. KETAMINE [Concomitant]
     Active Substance: KETAMINE
     Dosage: 1 MILLIGRAM/KILOGRAM, HOURLY
     Route: 042
  13. KETAMINE [Concomitant]
     Active Substance: KETAMINE
     Dosage: 5 MILLIGRAM/KILOGRAM, HOURLY
     Route: 042
  14. KETAMINE [Concomitant]
     Active Substance: KETAMINE
     Dosage: 7.5 MILLIGRAM/KILOGRAM, HOURLY
     Route: 042
  15. FUROSEMIDE [Concomitant]
     Active Substance: FUROSEMIDE
     Indication: Bladder discomfort
     Dosage: 40 MILLIGRAM

REACTIONS (2)
  - Off label use [Unknown]
  - Multiple-drug resistance [Unknown]
